FAERS Safety Report 15358519 (Version 2)
Quarter: 2019Q3

REPORT INFORMATION
  Report Type: Spontaneous
  Country: US (occurrence: US)
  Receive Date: 20180906
  Receipt Date: 20190712
  Transmission Date: 20191004
  Serious: Yes (Other)
  Sender: FDA-Public Use
  Company Number: US-BAUSCH-BL-2018-024150

PATIENT
  Age: 82 Year
  Sex: Female

DRUGS (4)
  1. GENERIC ALPHAGAN [Suspect]
     Active Substance: BRIMONIDINE TARTRATE
     Indication: PRODUCT USE IN UNAPPROVED INDICATION
  2. LIPITOR [Suspect]
     Active Substance: ATORVASTATIN CALCIUM
     Indication: PRODUCT USED FOR UNKNOWN INDICATION
     Route: 065
  3. GENERIC ALPHAGAN [Suspect]
     Active Substance: BRIMONIDINE TARTRATE
     Indication: BLOOD PRESSURE MEASUREMENT
     Dosage: GENERIC
     Route: 065
  4. GENERIC XALATAN [Suspect]
     Active Substance: LATANOPROST
     Indication: MACULAR DEGENERATION
     Dosage: GENERIC
     Route: 065

REACTIONS (4)
  - Drug ineffective [Unknown]
  - Product use in unapproved indication [Unknown]
  - Glaucoma [Unknown]
  - Swelling face [Unknown]
